FAERS Safety Report 6832315-1 (Version None)
Quarter: 2010Q3

REPORT INFORMATION
  Report Type: 
  Country: None (occurrence: None)
  Receive Date: 20100712
  Receipt Date: 20100528
  Transmission Date: 20110219
  Serious: Yes (Death, Hospitalization, Other)
  Sender: FDA-Public Use
  Company Number: US-BAXTER-2009BH008320

PATIENT
  Age: 78 Year
  Sex: Male
  Weight: 54 kg

DRUGS (23)
  1. HEPARIN SODIUM [Suspect]
     Indication: HAEMODIALYSIS
     Route: 010
     Dates: start: 20031127, end: 20071226
  2. HEPARIN SODIUM [Suspect]
     Indication: CLOT RETRACTION
     Route: 010
     Dates: start: 20031127, end: 20071226
  3. HEPARIN SODIUM [Suspect]
     Indication: VASCULAR GRAFT
     Route: 010
     Dates: start: 20031127, end: 20071226
  4. HEPARIN SODIUM [Suspect]
     Indication: ENDARTERECTOMY
     Route: 010
     Dates: start: 20031127, end: 20071226
  5. HEPARIN SODIUM [Suspect]
     Route: 042
     Dates: start: 20080104, end: 20080104
  6. HEPARIN SODIUM [Suspect]
     Route: 042
     Dates: start: 20080104, end: 20080104
  7. HEPARIN SODIUM [Suspect]
     Route: 042
     Dates: start: 20080104, end: 20080104
  8. HEPARIN SODIUM [Suspect]
     Route: 042
     Dates: start: 20080104, end: 20080104
  9. HEPARIN SODIUM [Suspect]
     Route: 042
     Dates: start: 20071118, end: 20071118
  10. HEPARIN SODIUM [Suspect]
     Route: 042
     Dates: start: 20071118, end: 20071118
  11. HEPARIN SODIUM [Suspect]
     Route: 042
     Dates: start: 20071118, end: 20071118
  12. HEPARIN SODIUM [Suspect]
     Route: 042
     Dates: start: 20071118, end: 20071118
  13. METOPROLOL [Concomitant]
     Indication: PRODUCT USED FOR UNKNOWN INDICATION
     Route: 065
  14. LISINOPRIL [Concomitant]
     Indication: PRODUCT USED FOR UNKNOWN INDICATION
     Route: 065
  15. ZANTAC [Concomitant]
     Indication: PRODUCT USED FOR UNKNOWN INDICATION
     Route: 065
  16. PHOSLO [Concomitant]
     Indication: PRODUCT USED FOR UNKNOWN INDICATION
     Route: 065
  17. BOOST [Concomitant]
     Indication: PRODUCT USED FOR UNKNOWN INDICATION
     Route: 065
  18. LEVOTHYROXINE [Concomitant]
     Indication: PRODUCT USED FOR UNKNOWN INDICATION
     Route: 065
  19. MULTI-VITAMINS [Concomitant]
     Indication: PRODUCT USED FOR UNKNOWN INDICATION
     Route: 065
  20. PREVACID [Concomitant]
     Indication: PRODUCT USED FOR UNKNOWN INDICATION
     Route: 065
  21. MINITRAN [Concomitant]
     Indication: PRODUCT USED FOR UNKNOWN INDICATION
     Route: 065
  22. ZEMPLAR [Concomitant]
     Indication: PRODUCT USED FOR UNKNOWN INDICATION
     Route: 065
  23. PROCRIT [Concomitant]
     Indication: PRODUCT USED FOR UNKNOWN INDICATION
     Route: 065

REACTIONS (17)
  - ANAEMIA [None]
  - ASCITES [None]
  - ASTHENIA [None]
  - CARDIAC ARREST [None]
  - CHOLELITHIASIS [None]
  - FACE OEDEMA [None]
  - FAECES DISCOLOURED [None]
  - FEMORAL ARTERIAL STENOSIS [None]
  - FEMORAL ARTERY OCCLUSION [None]
  - HYPERTENSION [None]
  - METABOLIC ACIDOSIS [None]
  - PLEURAL EFFUSION [None]
  - RENAL FAILURE CHRONIC [None]
  - RESPIRATORY FAILURE [None]
  - STAPHYLOCOCCAL INFECTION [None]
  - THROMBOCYTOPENIA [None]
  - THROMBOSIS [None]
